FAERS Safety Report 4788550-X (Version None)
Quarter: 2005Q4

REPORT INFORMATION
  Report Type: 
  Country: None (occurrence: None)
  Receive Date: 20051005
  Receipt Date: 20050927
  Transmission Date: 20060501
  Serious: Yes (Hospitalization)
  Sender: FDA-Public Use
  Company Number: FI-MERCK-0509FIN00013

PATIENT
  Age: 51 Year
  Sex: Female

DRUGS (4)
  1. VIOXX [Suspect]
     Indication: EPICONDYLITIS
     Route: 048
     Dates: start: 20040227, end: 20040313
  2. VIOXX [Suspect]
     Indication: SHOULDER PAIN
     Route: 048
     Dates: start: 20040227, end: 20040313
  3. DYDROGESTERONE AND ESTRADIOL [Concomitant]
     Route: 065
  4. FLUOXETINE [Concomitant]
     Indication: DEPRESSION
     Route: 048
     Dates: start: 20040806

REACTIONS (1)
  - ACUTE MYOCARDIAL INFARCTION [None]
